FAERS Safety Report 5564972-4 (Version None)
Quarter: 2007Q4

REPORT INFORMATION
  Report Type: 
  Country: None (occurrence: None)
  Receive Date: 20071218
  Receipt Date: 20071217
  Transmission Date: 20080405
  Serious: Yes (Other)
  Sender: FDA-Public Use
  Company Number: B0499979A

PATIENT
  Age: 46 Year
  Sex: Male

DRUGS (2)
  1. PAXIL [Suspect]
     Dosage: 40MG UNKNOWN
     Route: 048
  2. TRAZODONE HYDROCHLORIDE [Concomitant]
     Dosage: 50MG PER DAY

REACTIONS (1)
  - DEPRESSED LEVEL OF CONSCIOUSNESS [None]
